FAERS Safety Report 25629677 (Version 3)
Quarter: 2025Q3

REPORT INFORMATION
  Report Type: Spontaneous
  Country: CN (occurrence: CN)
  Receive Date: 20250731
  Receipt Date: 20250904
  Transmission Date: 20251021
  Serious: Yes (Life-Threatening)
  Sender: NOVARTIS
  Company Number: CN-002147023-NVSC2025CN115468

PATIENT
  Sex: Female

DRUGS (3)
  1. TEGRETOL [Suspect]
     Active Substance: CARBAMAZEPINE
     Indication: Epilepsy
     Dosage: 100 MG, QD (HALF TABLET)
     Route: 048
     Dates: start: 202506
  2. TEGRETOL [Suspect]
     Active Substance: CARBAMAZEPINE
     Dosage: 1 DOSAGE FORM, QD
     Route: 048
  3. PHENOBARBITAL [Concomitant]
     Active Substance: PHENOBARBITAL
     Indication: Product used for unknown indication
     Dosage: 15 MG, BID
     Route: 048

REACTIONS (9)
  - Dermatitis exfoliative [Recovering/Resolving]
  - Hyperpyrexia [Recovered/Resolved]
  - White blood cell count decreased [Recovered/Resolved]
  - Platelet count decreased [Recovered/Resolved]
  - Hypersensitivity [Recovered/Resolved]
  - Conjunctival haemorrhage [Recovered/Resolved]
  - Mouth ulceration [Recovering/Resolving]
  - Rash [Recovering/Resolving]
  - Wrong technique in product usage process [Unknown]
